FAERS Safety Report 17751033 (Version 4)
Quarter: 2020Q2

REPORT INFORMATION
  Report Type: Spontaneous
  Country: US (occurrence: US)
  Receive Date: 20200506
  Receipt Date: 20200618
  Transmission Date: 20200714
  Serious: No
  Sender: FDA-Public Use
  Company Number: US-PFIZER INC-2018213125

PATIENT
  Age: 13 Year
  Sex: Male
  Weight: 50.3 kg

DRUGS (6)
  1. GENOTROPIN [Suspect]
     Active Substance: SOMATROPIN
     Dosage: 3.2 MG, 1X/DAY
     Route: 058
     Dates: start: 20180523
  2. GENOTROPIN [Suspect]
     Active Substance: SOMATROPIN
     Indication: GROWTH HORMONE DEFICIENCY
     Dosage: 2 MG, DAILY (INJECTION UNDER THE SKIN 7 DAYS A WEEK)
     Route: 058
     Dates: start: 20180516
  3. GENOTROPIN [Suspect]
     Active Substance: SOMATROPIN
     Dosage: 3.4 MG, DAILY
     Route: 058
  4. GENOTROPIN [Suspect]
     Active Substance: SOMATROPIN
     Dosage: UNK
  5. GENOTROPIN [Suspect]
     Active Substance: SOMATROPIN
     Dosage: 3.4 MG, DAILY [7 DAYS/WEEK]
     Dates: start: 20180516
  6. GENOTROPIN [Suspect]
     Active Substance: SOMATROPIN
     Dosage: 3.4 MG, DAILY
     Route: 058
     Dates: start: 202002

REACTIONS (5)
  - Wrong technique in device usage process [Unknown]
  - Product dose omission [Unknown]
  - Needle issue [Unknown]
  - Device issue [Unknown]
  - Product dispensing error [Unknown]

NARRATIVE: CASE EVENT DATE: 20180517
